FAERS Safety Report 12799256 (Version 1)
Quarter: 2016Q3

REPORT INFORMATION
  Report Type: Report from Study
  Country: US (occurrence: US)
  Receive Date: 20160930
  Receipt Date: 20160930
  Transmission Date: 20161109
  Serious: Yes (Hospitalization, Disabling, Other)
  Sender: FDA-Public Use
  Company Number: US-BAYER-2015-442131

PATIENT
  Age: 47 Year
  Sex: Female
  Weight: 62.13 kg

DRUGS (11)
  1. ADEMPAS [Suspect]
     Active Substance: RIOCIGUAT
     Indication: PULMONARY ARTERIAL HYPERTENSION
     Dosage: 0.5 MG, TID (LAST SHIPPED 22-FEB-2016)
     Route: 048
  2. ADEMPAS [Suspect]
     Active Substance: RIOCIGUAT
     Indication: PULMONARY ARTERIAL HYPERTENSION
     Dosage: 0.5 MG, TID (LAST SHIPPED 16-MAR-2016)
     Route: 048
  3. ADEMPAS [Suspect]
     Active Substance: RIOCIGUAT
     Indication: PULMONARY ARTERIAL HYPERTENSION
     Dosage: 1.5 MG, TID (LAST SHIPPED 22-AUG-2016)
     Route: 048
  4. ADEMPAS [Suspect]
     Active Substance: RIOCIGUAT
     Indication: PULMONARY ARTERIAL HYPERTENSION
     Dosage: 1 MG, TID
     Route: 048
  5. ADEMPAS [Suspect]
     Active Substance: RIOCIGUAT
     Indication: PULMONARY ARTERIAL HYPERTENSION
     Dosage: 0.5 MG, TID (LAST SHIPPED 24-SEP-2015)
     Route: 048
     Dates: start: 20150924
  6. ADEMPAS [Suspect]
     Active Substance: RIOCIGUAT
     Indication: PULMONARY ARTERIAL HYPERTENSION
     Dosage: 0.5 MG, TID (LAST SHIPPED 18-DEC-2015)
     Route: 048
  7. ADEMPAS [Suspect]
     Active Substance: RIOCIGUAT
     Indication: PULMONARY ARTERIAL HYPERTENSION
     Dosage: 0.5 MG, TID (LAST SHIPPED 27-APR-2016)
     Route: 048
  8. LETAIRIS [Concomitant]
     Active Substance: AMBRISENTAN
     Dosage: UNK
  9. SELEXIPAG [Concomitant]
     Active Substance: SELEXIPAG
     Dosage: UNK
  10. ADEMPAS [Suspect]
     Active Substance: RIOCIGUAT
     Indication: PULMONARY ARTERIAL HYPERTENSION
     Dosage: 1 MG, TID (LAST SHIPPED 27-MAY-2016)
     Route: 048
  11. VELETRI [Suspect]
     Active Substance: EPOPROSTENOL

REACTIONS (17)
  - Blood potassium decreased [Unknown]
  - Pain in extremity [None]
  - Fatigue [None]
  - Peripheral swelling [None]
  - Diarrhoea [Unknown]
  - Therapy change [Unknown]
  - Cardiac failure [None]
  - Abdominal distension [None]
  - Vomiting [Unknown]
  - Swelling [None]
  - Disability [None]
  - Nausea [None]
  - Headache [Unknown]
  - Dyspnoea [Unknown]
  - Drug ineffective [None]
  - Flushing [None]
  - Swelling [Unknown]
